FAERS Safety Report 9586195 (Version 4)
Quarter: 2013Q4

REPORT INFORMATION
  Report Type: Spontaneous
  Country: US (occurrence: US)
  Receive Date: 20131003
  Receipt Date: 20131104
  Transmission Date: 20140711
  Serious: No
  Sender: FDA-Public Use
  Company Number: US-BAYER-2013-116673

PATIENT
  Sex: Female

DRUGS (1)
  1. MAGNEVIST [Suspect]
     Dosage: UNK UNK, ONCE
     Route: 042
     Dates: start: 20130924, end: 20130924

REACTIONS (1)
  - Dysphagia [Recovered/Resolved]
